FAERS Safety Report 6437757-4 (Version None)
Quarter: 2009Q4

REPORT INFORMATION
  Report Type: 
  Country: None (occurrence: None)
  Receive Date: 20091112
  Receipt Date: 20091102
  Transmission Date: 20100525
  Serious: Yes (Hospitalization)
  Sender: FDA-Public Use
  Company Number: FR-ABBOTT-09P-056-0606299-00

PATIENT
  Sex: Female

DRUGS (5)
  1. ODRIK [Suspect]
     Indication: DRUG USE FOR UNKNOWN INDICATION
     Route: 048
     Dates: end: 20090702
  2. IXPRIM [Suspect]
     Indication: DRUG USE FOR UNKNOWN INDICATION
     Route: 048
     Dates: end: 20090702
  3. FUROSEMIDE [Suspect]
     Indication: DRUG USE FOR UNKNOWN INDICATION
     Route: 048
     Dates: end: 20090702
  4. CORDARONE [Concomitant]
     Indication: DRUG USE FOR UNKNOWN INDICATION
     Route: 050
  5. SINTROM [Concomitant]
     Indication: DRUG USE FOR UNKNOWN INDICATION
     Dosage: ALTERNATE 1/2 TABLET AND 3/4
     Route: 048

REACTIONS (1)
  - CONFUSIONAL STATE [None]
